FAERS Safety Report 6130201-6 (Version None)
Quarter: 2009Q1

REPORT INFORMATION
  Report Type: 
  Country: None (occurrence: None)
  Receive Date: 20090324
  Receipt Date: 20090316
  Transmission Date: 20090719
  Serious: Yes (Hospitalization)
  Sender: FDA-Public Use
  Company Number: DE-ASTRAZENECA-2009PK00883

PATIENT
  Age: 65 Year
  Sex: Female
  Weight: 90 kg

DRUGS (8)
  1. RAMIPRIL [Suspect]
     Indication: HYPERTENSION
     Route: 048
  2. CIPROBAY [Interacting]
     Indication: GASTROENTERITIS
     Route: 048
     Dates: start: 20090104, end: 20090110
  3. FALITHROM ^HEXAL^ [Concomitant]
     Indication: ATRIAL FIBRILLATION
     Route: 048
     Dates: start: 20081201
  4. DIGITOXIN [Concomitant]
     Indication: CARDIAC FAILURE
     Route: 048
  5. HYDROCHLOROTHIAZIDE [Concomitant]
     Indication: CARDIAC FAILURE
     Route: 048
  6. METHOHEXITAL [Concomitant]
     Indication: HYPERTENSION
     Route: 048
  7. EUTHYROX 100 [Concomitant]
     Indication: HYPOTHYROIDISM
     Route: 048
  8. TOREM [Concomitant]
     Indication: CARDIAC FAILURE
     Route: 048

REACTIONS (1)
  - ATRIAL FIBRILLATION [None]
